FAERS Safety Report 7747675-7 (Version None)
Quarter: 2011Q3

REPORT INFORMATION
  Report Type: 
  Country: None (occurrence: None)
  Receive Date: 20110913
  Receipt Date: 20110905
  Transmission Date: 20111222
  Serious: Yes (Life-Threatening, Hospitalization, Disabling)
  Sender: FDA-Public Use
  Company Number: BR-CEPHALON-2011003191

PATIENT
  Sex: Male
  Weight: 81 kg

DRUGS (2)
  1. TREANDA [Suspect]
     Route: 042
     Dates: start: 20100916, end: 20110408
  2. RITUXIMAB [Suspect]
     Route: 042
     Dates: start: 20100916, end: 20110408

REACTIONS (1)
  - DEMYELINATING POLYNEUROPATHY [None]
